FAERS Safety Report 16527032 (Version 1)
Quarter: 2019Q3

REPORT INFORMATION
  Report Type: Spontaneous
  Country: FR (occurrence: FR)
  Receive Date: 20190703
  Receipt Date: 20190703
  Transmission Date: 20191004
  Serious: Yes (Other)
  Sender: FDA-Public Use
  Company Number: FR-PROVELL PHARMACEUTICALS-2070301

PATIENT
  Age: 75 Year
  Sex: Female

DRUGS (1)
  1. EUTHYROX [Suspect]
     Active Substance: LEVOTHYROXINE SODIUM
     Indication: POST PROCEDURAL HYPOTHYROIDISM
     Dates: start: 201704

REACTIONS (16)
  - Alopecia [None]
  - Peripheral swelling [None]
  - Hypokinesia [None]
  - Muscle spasms [None]
  - Diarrhoea [Recovered/Resolved]
  - Fall [None]
  - Hyperhidrosis [None]
  - Vomiting [Recovered/Resolved]
  - Fatigue [None]
  - Dyspnoea [Not Recovered/Not Resolved]
  - Dizziness [None]
  - Product taste abnormal [None]
  - Breast cancer [None]
  - Blood pressure increased [None]
  - Gait disturbance [None]
  - Pain in extremity [None]

NARRATIVE: CASE EVENT DATE: 2017
